FAERS Safety Report 7235317-9 (Version None)
Quarter: 2011Q1

REPORT INFORMATION
  Report Type: 
  Country: None (occurrence: None)
  Receive Date: 20110120
  Receipt Date: 20110112
  Transmission Date: 20110831
  Serious: Yes (Hospitalization)
  Sender: FDA-Public Use
  Company Number: TR-MEDIMMUNE-MEDI-0012245

PATIENT
  Sex: Female
  Weight: 3.3 kg

DRUGS (3)
  1. MAGNESIUM [Concomitant]
  2. SYNAGIS [Suspect]
     Route: 030
     Dates: end: 20101201
  3. MULTIVITAMINE [Concomitant]

REACTIONS (3)
  - PYREXIA [None]
  - PNEUMONIA [None]
  - COUGH [None]
